FAERS Safety Report 6864055-7 (Version None)
Quarter: 2010Q3

REPORT INFORMATION
  Report Type: 
  Country: None (occurrence: None)
  Receive Date: 20100721
  Receipt Date: 20100716
  Transmission Date: 20110219
  Serious: Yes (Other)
  Sender: FDA-Public Use
  Company Number: US-AMGEN-QUU424976

PATIENT
  Sex: Female
  Weight: 100 kg

DRUGS (2)
  1. NPLATE [Suspect]
     Indication: IDIOPATHIC THROMBOCYTOPENIC PURPURA
     Dates: start: 20090511
  2. IMURAN [Concomitant]
     Dates: start: 20100504, end: 20100607

REACTIONS (4)
  - APLASTIC ANAEMIA [None]
  - BIOPSY BONE MARROW ABNORMAL [None]
  - BONE MARROW DISORDER [None]
  - PANCYTOPENIA [None]
